FAERS Safety Report 6316173-X (Version None)
Quarter: 2009Q3

REPORT INFORMATION
  Report Type: 
  Country: None (occurrence: None)
  Receive Date: 20090820
  Receipt Date: 20090813
  Transmission Date: 20100115
  Serious: Yes (Death, Hospitalization)
  Sender: FDA-Public Use
  Company Number: FR-WYE-G04238709

PATIENT
  Age: 75 Year
  Sex: Female

DRUGS (7)
  1. TAZOCILLINE [Suspect]
     Dosage: UNKNOWN
     Route: 042
     Dates: start: 20090101, end: 20090709
  2. NEXIUM [Suspect]
     Dosage: UNKNOWN
     Dates: end: 20090709
  3. HYDROCORTISONE SODIUM SUCCINATE [Suspect]
     Dosage: UNKNOWN
     Route: 042
     Dates: start: 20090706, end: 20090709
  4. ROCEPHIN [Suspect]
     Dosage: UNKNOWN
     Route: 042
     Dates: start: 20090101, end: 20090709
  5. AMIKLIN [Suspect]
     Dosage: UNKNOWN
     Route: 042
     Dates: start: 20090101, end: 20090706
  6. HEPARIN [Suspect]
     Route: 042
     Dates: end: 20090707
  7. VANCOMYCIN [Suspect]
     Dosage: UNKNOWN
     Route: 042
     Dates: start: 20090101, end: 20090709

REACTIONS (10)
  - BACTERIAL INFECTION [None]
  - COLITIS ISCHAEMIC [None]
  - COLON GANGRENE [None]
  - OVERDOSE [None]
  - PERITONEAL DIALYSIS COMPLICATION [None]
  - PERITONITIS BACTERIAL [None]
  - RECTAL HAEMORRHAGE [None]
  - SEPTIC SHOCK [None]
  - STAPHYLOCOCCAL INFECTION [None]
  - THROMBOCYTOPENIA [None]
